FAERS Safety Report 6501033-1 (Version None)
Quarter: 2009Q4

REPORT INFORMATION
  Report Type: 
  Country: None (occurrence: None)
  Receive Date: 20091216
  Receipt Date: 20090608
  Transmission Date: 20100525
  Serious: No
  Sender: FDA-Public Use
  Company Number: A0789468A

PATIENT
  Age: 24 Year
  Sex: Male

DRUGS (1)
  1. COMMIT [Suspect]
     Dates: start: 20090602, end: 20090604

REACTIONS (2)
  - ANGER [None]
  - PANIC REACTION [None]
